FAERS Safety Report 17391021 (Version 1)
Quarter: 2020Q1

REPORT INFORMATION
  Report Type: Spontaneous
  Country: HU (occurrence: HU)
  Receive Date: 20200207
  Receipt Date: 20200207
  Transmission Date: 20200409
  Serious: Yes (Death, Hospitalization, Other)
  Sender: FDA-Public Use
  Company Number: HU-TEVA-2020-HU-1182467

PATIENT
  Age: 37 Year
  Sex: Female

DRUGS (2)
  1. EPITRIGINE [Suspect]
     Active Substance: LAMOTRIGINE
     Indication: EPILEPSY
     Dosage: 12.5 MG 12 HOURS
     Route: 048
     Dates: start: 20180115, end: 20180212
  2. VALPROIC ACID. [Interacting]
     Active Substance: VALPROIC ACID
     Indication: EPILEPSY
     Dosage: DOSAGE WAS NOT REPORTED. IN 2018 THE DOSE WAS GRADUALLY REDUCED, THEN DISCONTINUED.
     Route: 048
     Dates: end: 2018

REACTIONS (2)
  - Drug interaction [Unknown]
  - Toxic epidermal necrolysis [Fatal]

NARRATIVE: CASE EVENT DATE: 201802
